FAERS Safety Report 5791753-9 (Version None)
Quarter: 2008Q2

REPORT INFORMATION
  Report Type: 
  Country: None (occurrence: None)
  Receive Date: 20080626
  Receipt Date: 20080310
  Transmission Date: 20081010
  Serious: No
  Sender: FDA-Public Use
  Company Number: A0714280A

PATIENT
  Age: 43 Year
  Sex: Female

DRUGS (1)
  1. ALLI [Suspect]
     Dates: start: 20080107, end: 20080111

REACTIONS (2)
  - HEADACHE [None]
  - NAUSEA [None]
